FAERS Safety Report 21060103 (Version 1)
Quarter: 2022Q3

REPORT INFORMATION
  Report Type: Spontaneous
  Country: US (occurrence: US)
  Receive Date: 20220708
  Receipt Date: 20220708
  Transmission Date: 20221027
  Serious: No
  Sender: FDA-Public Use
  Company Number: US-SANOFI-01169663

PATIENT
  Age: 42 Year
  Sex: Male

DRUGS (4)
  1. DUPIXENT [Suspect]
     Active Substance: DUPILUMAB
     Indication: Asthma
     Dosage: UNK UNK, 1X
     Dates: start: 2021, end: 2021
  2. DUPIXENT [Suspect]
     Active Substance: DUPILUMAB
     Dosage: 300 MG, QOW
     Dates: start: 2021
  3. DUPIXENT [Suspect]
     Active Substance: DUPILUMAB
     Dosage: ONCE (FIRST DOSE OF LOADING DOSE)
     Dates: start: 202206, end: 202206
  4. DUPIXENT [Suspect]
     Active Substance: DUPILUMAB
     Dosage: ONCE(SECOND DOSE OF LOADING DOSE)
     Dates: start: 20220629

REACTIONS (5)
  - COVID-19 [Unknown]
  - Pruritus [Unknown]
  - Hot flush [Unknown]
  - Expired product administered [Unknown]
  - Inappropriate schedule of product administration [Unknown]

NARRATIVE: CASE EVENT DATE: 20220601
